FAERS Safety Report 18179959 (Version 1)
Quarter: 2020Q3

REPORT INFORMATION
  Report Type: Spontaneous
  Country: US (occurrence: US)
  Receive Date: 20200821
  Receipt Date: 20200821
  Transmission Date: 20201103
  Serious: No
  Sender: FDA-Public Use
  Company Number: US-AMGEN-USASP2020129805

PATIENT
  Sex: Female

DRUGS (1)
  1. REPATHA [Suspect]
     Active Substance: EVOLOCUMAB
     Indication: ARTERIOSCLEROSIS
     Dosage: 420 MILLIGRAM, Q4WK
     Route: 058
     Dates: start: 20190822, end: 20200413

REACTIONS (2)
  - Oral pain [Recovered/Resolved]
  - Rash [Recovered/Resolved]
